FAERS Safety Report 7045599-4 (Version None)
Quarter: 2010Q4

REPORT INFORMATION
  Report Type: 
  Country: None (occurrence: None)
  Receive Date: 20101013
  Receipt Date: 20101013
  Transmission Date: 20110411
  Serious: Yes (Other)
  Sender: FDA-Public Use
  Company Number: None

PATIENT
  Age: 53 Year
  Sex: Male
  Weight: 79.8331 kg

DRUGS (1)
  1. LOTEMAX [Suspect]
     Indication: CONJUNCTIVAL DISORDER
     Dosage: 5 MG/ML 2-3 TIMES A DAY OPHTHALMIC
     Route: 047
     Dates: start: 20100910, end: 20100917

REACTIONS (1)
  - LIQUID PRODUCT PHYSICAL ISSUE [None]
